FAERS Safety Report 12597392 (Version 1)
Quarter: 2016Q3

REPORT INFORMATION
  Report Type: Spontaneous
  Country: US (occurrence: None)
  Receive Date: 20160726
  Receipt Date: 20160726
  Transmission Date: 20161109
  Serious: No
  Sender: FDA-Public Use
  Company Number: None

PATIENT
  Age: 63 Year
  Sex: Female
  Weight: 77.11 kg

DRUGS (1)
  1. STRIVERDI RESPIMAT [Suspect]
     Active Substance: OLODATEROL HYDROCHLORIDE
     Indication: ASTHMA
     Route: 055
     Dates: start: 20160723, end: 20160723

REACTIONS (3)
  - Psychomotor hyperactivity [None]
  - Therapy change [None]
  - Heart rate increased [None]

NARRATIVE: CASE EVENT DATE: 20160723
